FAERS Safety Report 21541402 (Version 1)
Quarter: 2022Q4

REPORT INFORMATION
  Report Type: Spontaneous
  Country: US (occurrence: US)
  Receive Date: 20221102
  Receipt Date: 20221102
  Transmission Date: 20230112
  Serious: No
  Sender: FDA-Public Use
  Company Number: US-TEVA-2022-US-2816092

PATIENT
  Age: 80 Year
  Sex: Female
  Weight: 61 kg

DRUGS (2)
  1. QVAR REDIHALER [Suspect]
     Active Substance: BECLOMETHASONE DIPROPIONATE
     Indication: Asthma
     Dosage: 80 MCG/DOSE
     Route: 065
     Dates: start: 201903
  2. VENTOLIN [Concomitant]
     Active Substance: ALBUTEROL SULFATE
     Indication: Product used for unknown indication

REACTIONS (3)
  - Arthritis [Unknown]
  - Throat irritation [Unknown]
  - Inappropriate schedule of product administration [Unknown]
